FAERS Safety Report 9262983 (Version 10)
Quarter: 2014Q2

REPORT INFORMATION
  Report Type: Report from Study
  Country: CA (occurrence: CA)
  Receive Date: 20130430
  Receipt Date: 20140515
  Transmission Date: 20141212
  Serious: Yes (Hospitalization, Other)
  Sender: FDA-Public Use
  Company Number: CA-ROCHE-1189621

PATIENT
  Age: 69 Year
  Sex: Female
  Weight: 45 kg

DRUGS (12)
  1. ACTEMRA [Suspect]
     Indication: RHEUMATOID ARTHRITIS
     Route: 042
     Dates: start: 20130108, end: 20140423
  2. ACTEMRA [Suspect]
     Route: 042
     Dates: start: 20130813
  3. ACTEMRA [Suspect]
     Route: 042
     Dates: start: 20131204
  4. ACTEMRA [Suspect]
     Route: 042
     Dates: start: 20140103
  5. RITUXAN [Suspect]
     Indication: RHEUMATOID ARTHRITIS
     Route: 042
     Dates: start: 20120416, end: 20120501
  6. CELEBREX [Suspect]
     Indication: PRODUCT USED FOR UNKNOWN INDICATION
     Route: 065
  7. METHOTREXATE [Suspect]
     Indication: RHEUMATOID ARTHRITIS
     Route: 065
  8. EFFEXOR [Concomitant]
  9. FOLIC ACID [Concomitant]
  10. DIPHENHYDRAMINE HCL [Concomitant]
     Route: 048
     Dates: start: 20120416, end: 20120501
  11. ACETAMINOPHEN [Concomitant]
     Route: 048
     Dates: start: 20120416, end: 20120501
  12. METHYLPREDNISOLONE [Concomitant]
     Route: 042
     Dates: start: 20120416, end: 20120501

REACTIONS (15)
  - Amnesia [Recovered/Resolved]
  - Urinary tract infection [Recovered/Resolved]
  - Tendonitis [Not Recovered/Not Resolved]
  - Arthralgia [Not Recovered/Not Resolved]
  - Fatigue [Not Recovered/Not Resolved]
  - Fungal infection [Recovered/Resolved]
  - Weight decreased [Not Recovered/Not Resolved]
  - White blood cell count decreased [Unknown]
  - Cough [Unknown]
  - Headache [Unknown]
  - Abdominal pain [Unknown]
  - Stress [Unknown]
  - Pain in extremity [Not Recovered/Not Resolved]
  - Nausea [Unknown]
  - Photosensitivity reaction [Unknown]
